FAERS Safety Report 7443621-4 (Version None)
Quarter: 2011Q2

REPORT INFORMATION
  Report Type: 
  Country: None (occurrence: None)
  Receive Date: 20110428
  Receipt Date: 20110215
  Transmission Date: 20111010
  Serious: No
  Sender: FDA-Public Use
  Company Number: US-BAUSCH-2011BL000989

PATIENT
  Age: 67 Year
  Sex: Female
  Weight: 49 kg

DRUGS (3)
  1. VERAPAMIL [Concomitant]
     Indication: HYPERTENSION
  2. IPRATROPIUM BROMIDE [Suspect]
     Route: 045
     Dates: start: 20110210, end: 20110210
  3. IPRATROPIUM BROMIDE [Suspect]
     Indication: RHINORRHOEA
     Route: 045
     Dates: start: 20110209, end: 20110209

REACTIONS (3)
  - PALPITATIONS [None]
  - DIZZINESS [None]
  - TACHYCARDIA [None]
